FAERS Safety Report 18264073 (Version 6)
Quarter: 2021Q1

REPORT INFORMATION
  Report Type: Spontaneous
  Country: US (occurrence: US)
  Receive Date: 20200914
  Receipt Date: 20210329
  Transmission Date: 20210419
  Serious: Yes (Other)
  Sender: FDA-Public Use
  Company Number: US-PFIZER INC-2020352155

PATIENT
  Age: 59 Year
  Sex: Female
  Weight: 64.41 kg

DRUGS (3)
  1. FLECTOR [Suspect]
     Active Substance: DICLOFENAC EPOLAMINE
     Dosage: UNK, AS NEEDED (THREE 1.3% PATCHES ON TRANSDERMALLY IN AREAS OF PAIN, EVERY 24 HOURS)
     Route: 062
  2. FLECTOR [Suspect]
     Active Substance: DICLOFENAC EPOLAMINE
     Indication: PAIN
     Dosage: 1 PATCH TO SKIN TO MOST PAINFUL AREA TWICE A DAY
     Route: 062
  3. FLECTOR [Suspect]
     Active Substance: DICLOFENAC EPOLAMINE
     Indication: INTERVERTEBRAL DISC DEGENERATION
     Dosage: 1 PATCH TO SKIN THREE TIMES A DAY

REACTIONS (5)
  - Diabetes mellitus [Unknown]
  - Therapeutic product effect incomplete [Unknown]
  - Body height decreased [Unknown]
  - Off label use [Unknown]
  - Prescribed overdose [Unknown]
